FAERS Safety Report 5047880-7 (Version None)
Quarter: 2006Q3

REPORT INFORMATION
  Report Type: 
  Country: None (occurrence: None)
  Receive Date: 20060710
  Receipt Date: 20060710
  Transmission Date: 20061208
  Serious: Yes (Hospitalization)
  Sender: FDA-Public Use
  Company Number: None

PATIENT
  Age: 32 Year
  Sex: Female
  Weight: 81.6475 kg

DRUGS (3)
  1. EFFEXOR XR [Suspect]
     Indication: DEPRESSION
     Dosage: DONT REMEMBER 1X DAY PO [SEVERAL YEARS]
     Route: 048
  2. EFFEXOR XR [Suspect]
     Indication: DRUG WITHDRAWAL SYNDROME
     Dosage: DONT REMEMBER 1X DAY PO [SEVERAL YEARS]
     Route: 048
  3. ZOLOFT [Suspect]
     Indication: PARANOIA
     Dosage: 2 TABLETS -INITIALLY- 1X DAY PO
     Route: 048
     Dates: start: 20020815, end: 20060701

REACTIONS (5)
  - DRUG DEPENDENCE [None]
  - DRUG WITHDRAWAL SYNDROME [None]
  - IRRITABILITY [None]
  - PARANOIA [None]
  - TREATMENT NONCOMPLIANCE [None]
